FAERS Safety Report 24540093 (Version 1)
Quarter: 2024Q4

REPORT INFORMATION
  Report Type: Spontaneous
  Country: US (occurrence: None)
  Receive Date: 20241022
  Receipt Date: 20241022
  Transmission Date: 20250114
  Serious: No
  Sender: Public
  Company Number: None

PATIENT
  Sex: Female
  Weight: 76.5 kg

DRUGS (14)
  1. TRELEGY ELLIPTA [Suspect]
     Active Substance: FLUTICASONE FUROATE\UMECLIDINIUM BROMIDE\VILANTEROL TRIFENATATE
     Indication: Chronic obstructive pulmonary disease
     Dosage: OTHER QUANTITY : 1 PUFF(S);?FREQUENCY : DAILY;?
     Route: 055
     Dates: start: 20240911, end: 20240913
  2. Prolia injection [Concomitant]
  3. Vabysmo injection [Concomitant]
  4. AMLODIPINE [Concomitant]
  5. OMEPRAZOLE [Concomitant]
  6. SERTRALINE [Concomitant]
  7. Telmisart [Concomitant]
  8. HYDROCHLOROTHIAZIDE [Concomitant]
     Active Substance: HYDROCHLOROTHIAZIDE
  9. Ocuvite [Concomitant]
  10. SYMBICORT [Concomitant]
  11. ATORVASTATIN [Concomitant]
  12. STOOL SOFTENER [Concomitant]
  13. Woman^s 50plus multi vitamin [Concomitant]
  14. ACETAMINOPHEN [Concomitant]

REACTIONS (1)
  - Arthralgia [None]
